FAERS Safety Report 17715439 (Version 1)
Quarter: 2020Q2

REPORT INFORMATION
  Report Type: Spontaneous
  Country: JP (occurrence: JP)
  Receive Date: 20200427
  Receipt Date: 20200427
  Transmission Date: 20200714
  Serious: Yes (Other)
  Sender: FDA-Public Use
  Company Number: JP-HQ SPECIALTY-JP-2020INT000043

PATIENT
  Age: 10 Month
  Sex: Male

DRUGS (16)
  1. DEXMEDETOMIDINE HYDROCHLORIDE. [Suspect]
     Active Substance: DEXMEDETOMIDINE HYDROCHLORIDE
     Indication: SEDATION
     Dosage: 0.4 ?G/KG, 1 HR (DURATION, POSTOPERATIVE DAY 29)
     Route: 042
  2. DEXMEDETOMIDINE HYDROCHLORIDE. [Suspect]
     Active Substance: DEXMEDETOMIDINE HYDROCHLORIDE
     Dosage: TAPERED OFF OVER 2 DAYS [DURATION, 3 WEEKS AFTER DEX WAS INITIATED]
     Route: 042
  3. MIDAZOLAM. [Concomitant]
     Active Substance: MIDAZOLAM
     Indication: SEDATION
     Dosage: 0.1 MG/KG, 1 HR
     Route: 065
  4. FENTANYL. [Concomitant]
     Active Substance: FENTANYL
     Dosage: 5 ?G/KG, 1 HR
     Route: 065
  5. MIDAZOLAM. [Concomitant]
     Active Substance: MIDAZOLAM
     Dosage: 0.4 MG/KG, 1 HR (DURATION, POD 31)
     Route: 040
  6. DEXMEDETOMIDINE HYDROCHLORIDE. [Suspect]
     Active Substance: DEXMEDETOMIDINE HYDROCHLORIDE
     Dosage: SUCCESSFULLY TAPERED OFF BY 0.06 UG.KG/H/DAY OVER THE FOLLOWING 2 WEEKS
     Route: 042
  7. FENTANYL. [Concomitant]
     Active Substance: FENTANYL
     Indication: SEDATION
     Dosage: 1.8 ?G/KG, 1 HR
     Route: 065
  8. DEXMEDETOMIDINE HYDROCHLORIDE. [Suspect]
     Active Substance: DEXMEDETOMIDINE HYDROCHLORIDE
     Dosage: THE RATE OF DEXMEDETOMIDINE WAS INCREASED BY 0.2 MG/KG/HR GRADUALLY UP TO 1.4 MG/KG/HR
     Route: 042
  9. MIDAZOLAM. [Concomitant]
     Active Substance: MIDAZOLAM
     Dosage: INCREASED TO 1.4 MG/KG/H (1.4 MG/KG,1 HR)
     Route: 065
  10. FENTANYL. [Concomitant]
     Active Substance: FENTANYL
     Dosage: 3.5 ?G/KG, 1 HR
     Route: 065
  11. MIDAZOLAM. [Concomitant]
     Active Substance: MIDAZOLAM
     Dosage: GRADUALLY DECREASED
     Route: 065
  12. KETAMINE [Concomitant]
     Active Substance: KETAMINE
     Indication: PRODUCT USED FOR UNKNOWN INDICATION
     Dosage: UNK
     Route: 065
  13. MIDAZOLAM. [Concomitant]
     Active Substance: MIDAZOLAM
     Dosage: 1.7 MG/KG, 1 HR
     Route: 065
  14. FENTANYL. [Concomitant]
     Active Substance: FENTANYL
     Dosage: 2.8 ?G/KG, 1 HR
     Route: 065
  15. MIDAZOLAM. [Concomitant]
     Active Substance: MIDAZOLAM
     Dosage: GRADUALLY INCREASED
     Route: 065
  16. KETAMINE [Concomitant]
     Active Substance: KETAMINE
     Dosage: 2 MG/KG, 1 HR
     Route: 065

REACTIONS (13)
  - Product administered to patient of inappropriate age [Unknown]
  - Anxiety [Recovered/Resolved]
  - Withdrawal hypertension [Recovered/Resolved]
  - Blood alkaline phosphatase increased [Recovered/Resolved]
  - Respiratory depression [Recovered/Resolved]
  - Agitation [Recovered/Resolved]
  - Drug withdrawal syndrome [Recovered/Resolved]
  - Joint swelling [Recovered/Resolved]
  - Drug tolerance [Recovered/Resolved]
  - Discomfort [Recovered/Resolved]
  - Catheter site extravasation [Recovered/Resolved]
  - Generalised tonic-clonic seizure [Recovered/Resolved]
  - Restlessness [Recovered/Resolved]
